FAERS Safety Report 5752867-2 (Version None)
Quarter: 2008Q2

REPORT INFORMATION
  Report Type: 
  Country: None (occurrence: None)
  Receive Date: 20080529
  Receipt Date: 20080508
  Transmission Date: 20081010
  Serious: No
  Sender: FDA-Public Use
  Company Number: US-BOEHRINGER INGELHEIM GMBH, GERMANY-2008-BP-07339BP

PATIENT
  Age: 69 Year
  Sex: Female

DRUGS (3)
  1. COMBIVENT [Suspect]
     Indication: SARCOIDOSIS
     Route: 055
     Dates: start: 20040101
  2. ADVAIR DISKUS 100/50 [Concomitant]
  3. OXYGEN [Concomitant]

REACTIONS (1)
  - DYSPNOEA [None]
